FAERS Safety Report 8086122-5 (Version None)
Quarter: 2012Q1

REPORT INFORMATION
  Report Type: 
  Country: None (occurrence: None)
  Receive Date: 20120128
  Receipt Date: 20110414
  Transmission Date: 20120608
  Serious: No
  Sender: FDA-Public Use
  Company Number: US-ABBOTT-11P-163-0719052-00

PATIENT
  Age: 26 Year
  Sex: Male

DRUGS (3)
  1. BENAZEPRIL HYDROCHLORIDE [Concomitant]
     Indication: HYPERTENSION
     Route: 048
  2. HUMIRA [Suspect]
     Indication: PSORIASIS
     Dosage: 2 PENS/40 MG DAY 1
     Route: 058
     Dates: start: 20110405, end: 20110405
  3. HUMIRA [Suspect]
     Route: 058
     Dates: start: 20110412

REACTIONS (2)
  - INJECTION SITE ERYTHEMA [None]
  - INJECTION SITE PAPULE [None]
